FAERS Safety Report 20122909 (Version 1)
Quarter: 2021Q4

REPORT INFORMATION
  Report Type: Spontaneous
  Country: US (occurrence: US)
  Receive Date: 20211129
  Receipt Date: 20211129
  Transmission Date: 20220304
  Serious: Yes (Other)
  Sender: FDA-Public Use
  Company Number: US-UCBSA-2021005866

PATIENT
  Sex: Female
  Weight: 57.15 kg

DRUGS (8)
  1. VIMPAT [Interacting]
     Active Substance: LACOSAMIDE
     Indication: Seizure
     Dosage: UNK
     Dates: start: 202006
  2. PROBIOTICS NOS [Interacting]
     Active Substance: PROBIOTICS NOS
     Indication: Product used for unknown indication
     Dosage: UNK
  3. POTASSIUM CITRATE\SODIUM CITRATE\ZINC [Suspect]
     Active Substance: POTASSIUM CITRATE\SODIUM CITRATE\ZINC
     Indication: Product used for unknown indication
     Dosage: UNK
  4. SILICON DIOXIDE [Suspect]
     Active Substance: SILICON DIOXIDE
     Indication: Product used for unknown indication
  5. PROBIOTICS NOS [Suspect]
     Active Substance: PROBIOTICS NOS
     Indication: Product used for unknown indication
     Dosage: UNK
     Dates: start: 202006
  6. SUCRALFATE [Suspect]
     Active Substance: SUCRALFATE
     Indication: Product used for unknown indication
     Dosage: UNK
  7. GABAPENTIN [Concomitant]
     Active Substance: GABAPENTIN
     Indication: Seizure
  8. CLONAZEPAM [Concomitant]
     Active Substance: CLONAZEPAM
     Indication: Seizure

REACTIONS (3)
  - Seizure [Unknown]
  - Toxicity to various agents [Unknown]
  - Drug interaction [Unknown]

NARRATIVE: CASE EVENT DATE: 20200101
